FAERS Safety Report 15933000 (Version 1)
Quarter: 2019Q1

REPORT INFORMATION
  Report Type: Spontaneous
  Country: ES (occurrence: ES)
  Receive Date: 20190207
  Receipt Date: 20190207
  Transmission Date: 20190417
  Serious: Yes (Other)
  Sender: FDA-Public Use
  Company Number: ES-BAYER-2019-025777

PATIENT
  Age: 58 Year
  Sex: Female

DRUGS (9)
  1. LORMETAZEPAM [Concomitant]
     Active Substance: LORMETAZEPAM
     Dosage: 4 MG, QD
     Route: 048
     Dates: start: 20150225
  2. AMLODIPINO [AMLODIPINE] [Concomitant]
     Indication: TYPE 2 DIABETES MELLITUS
     Dosage: 10 MG, BID
     Route: 048
     Dates: start: 20150225
  3. HUMALOG MIX75/25 [Concomitant]
     Active Substance: INSULIN LISPRO
     Indication: TYPE 2 DIABETES MELLITUS
     Dosage: UNK
     Route: 058
  4. OMEPRAZOL [OMEPRAZOLE] [Concomitant]
     Dosage: 20 MG, QD
     Route: 048
     Dates: start: 20150312
  5. TENORMIN [Concomitant]
     Active Substance: ATENOLOL
     Indication: ANGINA UNSTABLE
     Dosage: 150 MG, QOD
     Route: 048
     Dates: start: 20150212
  6. ADIRO 100 MG [Suspect]
     Active Substance: ASPIRIN
     Indication: INTERMITTENT CLAUDICATION
     Dosage: 100 MG, QD
     Route: 048
     Dates: start: 20181218, end: 20190106
  7. CANDESARTAN. [Concomitant]
     Active Substance: CANDESARTAN
     Indication: HYPERTENSION
     Dosage: 64 MG, OM
     Route: 048
     Dates: start: 20150225
  8. JARDIANCE [Concomitant]
     Active Substance: EMPAGLIFLOZIN
     Indication: TYPE 2 DIABETES MELLITUS
     Dosage: 25 MG, QD
     Route: 048
     Dates: start: 20180308
  9. ANTALGIN [INDOMETACIN] [Concomitant]
     Indication: INTERMITTENT CLAUDICATION
     Dosage: UNK
     Route: 048

REACTIONS (2)
  - Dyspnoea [Recovered/Resolved]
  - Chest discomfort [Recovered/Resolved]

NARRATIVE: CASE EVENT DATE: 20190106
